FAERS Safety Report 4693594-2 (Version None)
Quarter: 2005Q2

REPORT INFORMATION
  Report Type: 
  Country: None (occurrence: None)
  Receive Date: 20050615
  Receipt Date: 20050603
  Transmission Date: 20051028
  Serious: Yes (Hospitalization)
  Sender: FDA-Public Use
  Company Number: GBWYE430316FEB05

PATIENT
  Age: 28 Year
  Sex: Female

DRUGS (3)
  1. IBUPROFEN [Suspect]
     Dosage: 2 LIQUID CAPSULES
  2. VENTOLIN (SALBUTAMOL SULFATE) [Concomitant]
  3. UNSPECIFIED ANTIHISTAMINE (UNSPECIFIED ANTIHISTAMINE) [Concomitant]

REACTIONS (6)
  - ANAPHYLACTIC SHOCK [None]
  - ANGIONEUROTIC OEDEMA [None]
  - ASTHMA [None]
  - FOOD ALLERGY [None]
  - ORAL PRURITUS [None]
  - RHINITIS [None]
